FAERS Safety Report 8442830-5 (Version None)
Quarter: 2012Q2

REPORT INFORMATION
  Report Type: 
  Country: None (occurrence: None)
  Receive Date: 20120615
  Receipt Date: 20120612
  Transmission Date: 20120825
  Serious: No
  Sender: FDA-Public Use
  Company Number: US-ASTRAZENECA-2012SE39288

PATIENT
  Age: 86 Year
  Sex: Male

DRUGS (1)
  1. BRILINTA [Suspect]
     Indication: MYOCARDIAL INFARCTION
     Route: 048

REACTIONS (4)
  - SKIN EXFOLIATION [None]
  - RASH PRURITIC [None]
  - SKIN WARM [None]
  - DRUG HYPERSENSITIVITY [None]
